FAERS Safety Report 5117624-9 (Version None)
Quarter: 2006Q3

REPORT INFORMATION
  Report Type: 
  Country: None (occurrence: None)
  Receive Date: 20060929
  Receipt Date: 20060921
  Transmission Date: 20061208
  Serious: Yes (Hospitalization, Other)
  Sender: FDA-Public Use
  Company Number: SE-ABBOTT-06P-150-0344698-00

PATIENT
  Age: 58 Year
  Sex: Female

DRUGS (3)
  1. HUMIRA [Suspect]
     Indication: RHEUMATOID ARTHRITIS
     Route: 058
     Dates: start: 20031013, end: 20060410
  2. PREDNISOLONE [Concomitant]
     Indication: RHEUMATOID ARTHRITIS
  3. METOJECT [Concomitant]
     Indication: RHEUMATOID ARTHRITIS

REACTIONS (4)
  - ENDOCARDITIS [None]
  - INFLUENZA [None]
  - SEPTIC ARTHRITIS STAPHYLOCOCCAL [None]
  - WOUND [None]
